FAERS Safety Report 8058236-7 (Version None)
Quarter: 2012Q1

REPORT INFORMATION
  Report Type: 
  Country: None (occurrence: None)
  Receive Date: 20120111
  Receipt Date: 20120105
  Transmission Date: 20120608
  Serious: Yes (Hospitalization, Other)
  Sender: FDA-Public Use
  Company Number: 2012SP000828

PATIENT
  Age: 76 Year
  Sex: Female

DRUGS (8)
  1. ACYCLOVIR [Concomitant]
  2. DOMPERIDONE [Concomitant]
  3. VELCADE [Suspect]
     Indication: MULTIPLE MYELOMA
     Dosage: IV
     Route: 042
     Dates: start: 20111108
  4. DOXAZOSIN MESYLATE [Concomitant]
  5. ASPIRIN [Concomitant]
  6. DEXAMETHASONE TAB [Suspect]
     Indication: MULTIPLE MYELOMA
     Dosage: PO
     Route: 048
     Dates: start: 20111108
  7. OMEPRAZOLE [Concomitant]
  8. ATENOLOL [Concomitant]

REACTIONS (3)
  - GASTROENTERITIS [None]
  - VOMITING [None]
  - ABDOMINAL PAIN UPPER [None]
